FAERS Safety Report 18174804 (Version 1)
Quarter: 2020Q3

REPORT INFORMATION
  Report Type: Spontaneous
  Country: US (occurrence: US)
  Receive Date: 20200820
  Receipt Date: 20200820
  Transmission Date: 20201103
  Serious: Yes (Other)
  Sender: FDA-Public Use
  Company Number: US-PFIZER INC-2020322243

PATIENT
  Age: 58 Year
  Sex: Female
  Weight: 82.1 kg

DRUGS (1)
  1. DILANTIN [Suspect]
     Active Substance: PHENYTOIN
     Indication: SEIZURE
     Dosage: 200 MG, 2X/DAY (2 CAPSULES MORNING, 2 CAPSULES IN THE AFTERNOON)
     Route: 048

REACTIONS (4)
  - Fall [Unknown]
  - Pain [Unknown]
  - Rib fracture [Unknown]
  - Seizure [Unknown]
